FAERS Safety Report 7600462-2 (Version None)
Quarter: 2011Q2

REPORT INFORMATION
  Report Type: 
  Country: None (occurrence: None)
  Receive Date: 20110629
  Receipt Date: 20110614
  Transmission Date: 20111010
  Serious: Yes (Death, Hospitalization)
  Sender: FDA-Public Use
  Company Number: FK201101220

PATIENT
  Age: 63 Year
  Sex: Male

DRUGS (10)
  1. CYCLOPHOSPHAMIDE [Suspect]
     Indication: EPSTEIN-BARR VIRUS ASSOCIATED LYMPHOPROLIFERATIVE DISORDER
  2. PREDNISONE [Suspect]
     Indication: EPSTEIN-BARR VIRUS ASSOCIATED LYMPHOPROLIFERATIVE DISORDER
  3. DACLIZUMAB (DACLIZUMAB) (DACLIZUMAB) [Suspect]
     Dosage: 1 MG/KG/DAY
  4. DOXORUBICIN (MANUFACTURERE UNKNOWN) (DOXORUBICIN HYDROCHLORIDE) (DOXOR [Suspect]
     Indication: EPSTEIN-BARR VIRUS ASSOCIATED LYMPHOPROLIFERATIVE DISORDER
  5. METHYLPREDNISOLONE [Suspect]
     Dosage: 2 MG/KG, INTRAVENOUS (NOT OTHERWISE SPECIFIED)
     Route: 042
  6. RITUXIMAB (RITUXIMAB) (RITUXIMAB) [Suspect]
     Indication: EPSTEIN-BARR VIRUS ASSOCIATED LYMPHOPROLIFERATIVE DISORDER
  7. TACROLIMUS [Suspect]
  8. ETOPOSIDE [Suspect]
     Indication: EPSTEIN-BARR VIRUS ASSOCIATED LYMPHOPROLIFERATIVE DISORDER
  9. VINCRISTINE [Suspect]
     Indication: EPSTEIN-BARR VIRUS ASSOCIATED LYMPHOPROLIFERATIVE DISORDER
  10. ALEMTUZUMAB (ALEMTUZUMAB) (ALEMTUZUMAB) [Suspect]
     Dosage: 3 MG/DAY

REACTIONS (8)
  - ACANTHAMOEBA INFECTION [None]
  - RASH [None]
  - CENTRAL NERVOUS SYSTEM LESION [None]
  - PSEUDOMONAL SEPSIS [None]
  - ESCHAR [None]
  - LUNG NEOPLASM [None]
  - DIARRHOEA [None]
  - ACUTE GRAFT VERSUS HOST DISEASE [None]
